FAERS Safety Report 15769949 (Version 1)
Quarter: 2018Q4

REPORT INFORMATION
  Report Type: Spontaneous
  Country: US (occurrence: US)
  Receive Date: 20181228
  Receipt Date: 20181228
  Transmission Date: 20190205
  Serious: Yes (Other)
  Sender: FDA-Public Use
  Company Number: US-ASTRAZENECA-2018SF69507

PATIENT
  Age: 57 Year
  Sex: Male

DRUGS (2)
  1. OMEPRAZOLE. [Suspect]
     Active Substance: OMEPRAZOLE
     Indication: DYSPEPSIA
     Dosage: 40.0MG UNKNOWN
     Route: 048
  2. CALCIUM CARBONATE. [Suspect]
     Active Substance: CALCIUM CARBONATE
     Dosage: 10 DF, UNK
     Route: 065

REACTIONS (3)
  - Incorrect dose administered [Unknown]
  - Incorrect product administration duration [Unknown]
  - Iron deficiency anaemia [Recovered/Resolved]
